FAERS Safety Report 10064615 (Version 1)
Quarter: 2014Q2

REPORT INFORMATION
  Report Type: Spontaneous
  Country: US (occurrence: None)
  Receive Date: 20140407
  Receipt Date: 20140407
  Transmission Date: 20141212
  Serious: Yes (Other)
  Sender: FDA-Public Use
  Company Number: None

PATIENT
  Age: 44 Year
  Sex: Female

DRUGS (3)
  1. CREST PROHEALTH RINSE [Suspect]
     Indication: DENTAL CARE
     Dates: start: 20140111, end: 20140404
  2. CREST PROHEALTH RINSE [Suspect]
     Indication: GINGIVITIS
     Dates: start: 20140111, end: 20140404
  3. CREST PROHEALTH RINSE [Suspect]
     Indication: PROPHYLAXIS
     Dates: start: 20140111, end: 20140404

REACTIONS (1)
  - Tooth discolouration [None]
